FAERS Safety Report 11888134 (Version 5)
Quarter: 2016Q4

REPORT INFORMATION
  Report Type: Spontaneous
  Country: US (occurrence: US)
  Receive Date: 20160105
  Receipt Date: 20161220
  Transmission Date: 20170206
  Serious: Yes (Other)
  Sender: FDA-Public Use
  Company Number: US-ASTRAZENECA-2015SF30665

PATIENT
  Age: 58 Year
  Sex: Male

DRUGS (5)
  1. SEROQUEL XR [Suspect]
     Active Substance: QUETIAPINE FUMARATE
     Indication: BIPOLAR DISORDER
     Dosage: 300.0MG UNKNOWN
     Route: 048
  2. SEROQUEL XR [Suspect]
     Active Substance: QUETIAPINE FUMARATE
     Indication: BIPOLAR DISORDER
     Dosage: 400.0MG UNKNOWN
     Route: 048
  3. AMLODIPINE [Concomitant]
     Active Substance: AMLODIPINE BESYLATE
     Indication: BLOOD PRESSURE ABNORMAL
  4. LOSARTAN. [Concomitant]
     Active Substance: LOSARTAN
     Indication: BLOOD PRESSURE ABNORMAL
     Dosage: HIGH DOSE
  5. OTHER MEDICATIONS [Concomitant]
     Active Substance: UNSPECIFIED INGREDIENT

REACTIONS (12)
  - Blood pressure abnormal [Unknown]
  - Depressed mood [Unknown]
  - Arthropathy [Unknown]
  - Gout [Unknown]
  - Renal disorder [Unknown]
  - Weight increased [Unknown]
  - Mental disorder [Unknown]
  - Gastric dilatation [Unknown]
  - Increased appetite [Unknown]
  - Metabolic disorder [Unknown]
  - Hypophagia [Unknown]
  - Feeling abnormal [Unknown]
